FAERS Safety Report 8031977-3 (Version None)
Quarter: 2012Q1

REPORT INFORMATION
  Report Type: 
  Country: None (occurrence: None)
  Receive Date: 20120109
  Receipt Date: 20110401
  Transmission Date: 20120608
  Serious: No
  Sender: FDA-Public Use
  Company Number: US-ABBOTT-11P-163-0715894-00

PATIENT
  Sex: Female

DRUGS (6)
  1. VICODIN [Suspect]
     Indication: ARTHRALGIA
     Dosage: 5-500MG AS NEEDED
     Dates: start: 20110101
  2. IMITREX [Concomitant]
     Indication: PRODUCT USED FOR UNKNOWN INDICATION
  3. VICODIN [Suspect]
     Indication: KNEE OPERATION
     Dosage: 5-500MG AS NEEDED
     Dates: start: 20101001
  4. SUMAVEL DOSEPRO [Suspect]
     Indication: MIGRAINE
  5. COMPRO [Concomitant]
     Indication: PRODUCT USED FOR UNKNOWN INDICATION
  6. TOPAMAX [Concomitant]
     Indication: PRODUCT USED FOR UNKNOWN INDICATION

REACTIONS (6)
  - FATIGUE [None]
  - ARTHRALGIA [None]
  - DYSPNOEA [None]
  - SENSORY DISTURBANCE [None]
  - MIGRAINE [None]
  - JOINT INJURY [None]
